FAERS Safety Report 10242708 (Version 3)
Quarter: 2014Q3

REPORT INFORMATION
  Report Type: Report from Study
  Country: US (occurrence: US)
  Receive Date: 20140617
  Receipt Date: 20140723
  Transmission Date: 20150326
  Serious: Yes (Other)
  Sender: FDA-Public Use
  Company Number: US-ABBVIE-14P-163-1246511-00

PATIENT
  Age: 55 Year
  Sex: Male

DRUGS (8)
  1. FENTANYL. [Concomitant]
     Active Substance: FENTANYL
  2. HUMIRA [Suspect]
     Active Substance: ADALIMUMAB
     Indication: CROHN^S DISEASE
     Dates: start: 2009, end: 2012
  3. IMURAN [Concomitant]
     Active Substance: AZATHIOPRINE
     Indication: PRODUCT USED FOR UNKNOWN INDICATION
  4. PREDNISONE. [Concomitant]
     Active Substance: PREDNISONE
     Indication: PRODUCT USED FOR UNKNOWN INDICATION
  5. CIMZIA [Concomitant]
     Active Substance: CERTOLIZUMAB PEGOL
     Indication: PRODUCT USED FOR UNKNOWN INDICATION
     Dosage: 2 INJECTIONS
  6. FENTANYL. [Concomitant]
     Active Substance: FENTANYL
  7. OXYCONTIN [Concomitant]
     Active Substance: OXYCODONE HYDROCHLORIDE
     Indication: PAIN
     Dosage: UP TO 6 TABS DAILY, AS NEEDED
  8. FENTANYL. [Concomitant]
     Active Substance: FENTANYL
     Indication: PRODUCT USED FOR UNKNOWN INDICATION

REACTIONS (30)
  - Injection site bruising [Recovered/Resolved]
  - Crohn^s disease [Unknown]
  - Grip strength decreased [Unknown]
  - Hyperkeratosis [Unknown]
  - Activities of daily living impaired [Unknown]
  - Diarrhoea [Not Recovered/Not Resolved]
  - Decreased appetite [Unknown]
  - Gait disturbance [Not Recovered/Not Resolved]
  - Suicidal ideation [Unknown]
  - Arthralgia [Unknown]
  - Abasia [Unknown]
  - Diplopia [Unknown]
  - Back pain [Recovered/Resolved]
  - Strabismus [Unknown]
  - Feeling cold [Unknown]
  - Visual acuity reduced [Recovering/Resolving]
  - Pain [Not Recovered/Not Resolved]
  - Stress [Unknown]
  - Eye swelling [Unknown]
  - Laceration [Unknown]
  - Joint injury [Unknown]
  - Dyspepsia [Unknown]
  - Ocular discomfort [Unknown]
  - Arthralgia [Not Recovered/Not Resolved]
  - Gastrointestinal haemorrhage [Recovered/Resolved]
  - Weight decreased [Unknown]
  - Pain [Unknown]
  - Arthritis enteropathic [Unknown]
  - Weight decreased [Not Recovered/Not Resolved]
  - Hypoaesthesia [Recovered/Resolved]

NARRATIVE: CASE EVENT DATE: 2009
